FAERS Safety Report 13160648 (Version 1)
Quarter: 2017Q1

REPORT INFORMATION
  Report Type: Spontaneous
  Country: GB (occurrence: GB)
  Receive Date: 20170129
  Receipt Date: 20170129
  Transmission Date: 20170428
  Serious: Yes (Death, Other)
  Sender: FDA-Public Use
  Company Number: PHFR2017GB000836

PATIENT
  Sex: Female

DRUGS (1)
  1. PANOBINOSTAT [Suspect]
     Active Substance: PANOBINOSTAT
     Indication: PLASMA CELL MYELOMA
     Route: 065

REACTIONS (3)
  - Death [Fatal]
  - Plasma cell myeloma [Not Recovered/Not Resolved]
  - Recurrent cancer [Not Recovered/Not Resolved]
